FAERS Safety Report 5169744-0 (Version None)
Quarter: 2006Q4

REPORT INFORMATION
  Report Type: 
  Country: None (occurrence: None)
  Receive Date: 20061201
  Receipt Date: 20061109
  Transmission Date: 20070319
  Serious: Yes (Hospitalization, Other)
  Sender: FDA-Public Use
  Company Number: 2006082924

PATIENT
  Age: 59 Year
  Sex: Male
  Weight: 99.7913 kg

DRUGS (2)
  1. BEXTRA [Suspect]
     Indication: PAIN
  2. VIOXX [Suspect]
     Indication: TESTICULAR PAIN
     Dosage: 25 MG (25 MG, 1 IN 1 D)
     Dates: start: 20030823

REACTIONS (7)
  - BIPOLAR DISORDER [None]
  - CARDIAC FAILURE CONGESTIVE [None]
  - CHRONIC FATIGUE SYNDROME [None]
  - CONVULSION [None]
  - DEPRESSION [None]
  - MYOCARDIAL INFARCTION [None]
  - SCHIZOPHRENIA [None]
